FAERS Safety Report 21367994 (Version 1)
Quarter: 2022Q3

REPORT INFORMATION
  Report Type: Spontaneous
  Country: US (occurrence: US)
  Receive Date: 20220923
  Receipt Date: 20220923
  Transmission Date: 20221027
  Serious: No
  Sender: FDA-Public Use
  Company Number: US-SANOFI-01283023

PATIENT
  Age: 59 Year
  Sex: Female

DRUGS (3)
  1. LANTUS SOLOSTAR [Suspect]
     Active Substance: INSULIN GLARGINE
     Indication: Diabetes mellitus
     Dosage: 30 IU, QD AND DRUG TREATMENT DURATION:1 HALF USED
  2. LANTUS SOLOSTAR [Suspect]
     Active Substance: INSULIN GLARGINE
     Indication: Ketoacidosis
  3. PRANDIAL [VOGLIBOSE] [Concomitant]
     Dosage: UNK

REACTIONS (2)
  - Blood glucose decreased [Unknown]
  - Product use in unapproved indication [Unknown]
